FAERS Safety Report 4655530-4 (Version None)
Quarter: 2005Q2

REPORT INFORMATION
  Report Type: 
  Country: None (occurrence: None)
  Receive Date: 20050505
  Receipt Date: 20050425
  Transmission Date: 20051028
  Serious: Yes (Hospitalization)
  Sender: FDA-Public Use
  Company Number: S05-USA-02246-01

PATIENT
  Age: 27 Year
  Sex: Male

DRUGS (11)
  1. LEXAPRO [Suspect]
     Indication: DEPRESSION
     Dosage: 20 MG QD PO
     Route: 048
     Dates: end: 20050406
  2. LEXAPRO [Suspect]
     Indication: DEPRESSION
     Dosage: 20 MG QD PO
     Route: 048
     Dates: start: 20050412
  3. KLONOPIN [Suspect]
     Dosage: 17 MG ONCE PO
     Route: 048
     Dates: start: 20050406, end: 20050406
  4. SOMA [Suspect]
     Dates: start: 20050406, end: 20050406
  5. RELAFEN [Suspect]
     Indication: BACK PAIN
     Dosage: 750 MG BID
     Dates: start: 20050401
  6. CYPROHEPTADINE HCL [Concomitant]
  7. CLARITIN [Concomitant]
  8. HYDROXYZINE [Concomitant]
  9. INDERAL [Concomitant]
  10. DOXYCYCLINE [Concomitant]
  11. MELATONIN [Concomitant]

REACTIONS (7)
  - AGITATION [None]
  - GAIT DISTURBANCE [None]
  - IRRITABILITY [None]
  - MULTIPLE DRUG OVERDOSE ACCIDENTAL [None]
  - PSYCHOMOTOR RETARDATION [None]
  - SEDATION [None]
  - STUPOR [None]
